FAERS Safety Report 4886392-8 (Version None)
Quarter: 2006Q1

REPORT INFORMATION
  Report Type: 
  Country: None (occurrence: None)
  Receive Date: 20060120
  Receipt Date: 20051010
  Transmission Date: 20060701
  Serious: Yes (Disabling)
  Sender: FDA-Public Use
  Company Number: US-MERCK-0510USA06257

PATIENT
  Age: 69 Year
  Sex: Male
  Weight: 70 kg

DRUGS (13)
  1. VIOXX [Suspect]
     Indication: ARTHRITIS
     Route: 048
     Dates: start: 19990101, end: 20040901
  2. DIAZEPAM [Concomitant]
     Route: 065
  3. ALLEGRA [Concomitant]
     Route: 065
  4. ECOTRIN [Concomitant]
     Route: 065
  5. ACETAMINOPHEN [Concomitant]
     Route: 065
  6. ANTABUSE [Concomitant]
     Route: 065
  7. ENALAPRIL MALEATE [Concomitant]
     Route: 065
  8. FLUOXETINE [Concomitant]
     Route: 065
  9. PRAVACHOL [Concomitant]
     Route: 065
  10. FAMOTIDINE [Concomitant]
     Route: 065
  11. TEMAZEPAM [Concomitant]
     Route: 065
  12. LIPITOR [Concomitant]
     Route: 065
  13. GLIPIZIDE [Concomitant]
     Route: 065

REACTIONS (7)
  - ASTHENIA [None]
  - CARDIOVASCULAR DISORDER [None]
  - CEREBROVASCULAR ACCIDENT [None]
  - CHRONIC OBSTRUCTIVE PULMONARY DISEASE [None]
  - DEMENTIA [None]
  - DYSPNOEA [None]
  - SINUS TACHYCARDIA [None]
